FAERS Safety Report 24957652 (Version 2)
Quarter: 2025Q1

REPORT INFORMATION
  Report Type: Report from Study
  Country: DE (occurrence: DE)
  Receive Date: 20250212
  Receipt Date: 20250217
  Transmission Date: 20250409
  Serious: Yes (Hospitalization)
  Sender: ROCHE
  Company Number: DE-ML39632-2425784-0

PATIENT
  Age: 66 Year
  Sex: Female

DRUGS (7)
  1. OCREVUS [Suspect]
     Active Substance: OCRELIZUMAB
     Indication: Relapsing multiple sclerosis
     Route: 040
     Dates: start: 20181025, end: 20190404
  2. OCREVUS [Suspect]
     Active Substance: OCRELIZUMAB
     Route: 040
     Dates: start: 20180416, end: 20180430
  3. METHYPRED [METHYLPREDNISOLONE ACETATE] [Concomitant]
     Route: 040
     Dates: start: 20191014, end: 20191016
  4. LEVOTHYROXINE SODIUM [Concomitant]
     Active Substance: LEVOTHYROXINE SODIUM
     Route: 048
  5. Comirnaty [Concomitant]
     Indication: COVID-19 immunisation
     Route: 030
     Dates: start: 20210610, end: 20210610
  6. Comirnaty [Concomitant]
     Route: 030
     Dates: start: 20211204, end: 20211204
  7. Comirnaty [Concomitant]
     Route: 030
     Dates: start: 20210429, end: 20210429

REACTIONS (1)
  - Infectious pleural effusion [Recovered/Resolved]

NARRATIVE: CASE EVENT DATE: 20240213
